FAERS Safety Report 11518314 (Version 1)
Quarter: 2015Q3

REPORT INFORMATION
  Report Type: Spontaneous
  Country: TR (occurrence: TR)
  Receive Date: 20150917
  Receipt Date: 20150917
  Transmission Date: 20151125
  Serious: Yes (Other)
  Sender: FDA-Public Use
  Company Number: TR-TEVA-592817ISR

PATIENT
  Age: 16 Year
  Sex: Male
  Weight: 76 kg

DRUGS (1)
  1. ZOLERIP [Suspect]
     Active Substance: ARIPIPRAZOLE
     Indication: ABNORMAL BEHAVIOUR
     Dosage: 15 MILLIGRAM DAILY; ZOLERIP 15 MG FILM TABLET
     Route: 048
     Dates: end: 20150715

REACTIONS (5)
  - Joint stiffness [Recovered/Resolved]
  - Tremor [Recovered/Resolved]
  - Swollen tongue [Recovered/Resolved]
  - Gait disturbance [Recovered/Resolved]
  - Dyspnoea [Recovered/Resolved]

NARRATIVE: CASE EVENT DATE: 20150701
